FAERS Safety Report 15340206 (Version 1)
Quarter: 2018Q3

REPORT INFORMATION
  Report Type: Report from Study
  Country: None (occurrence: US)
  Receive Date: 20180831
  Receipt Date: 20180831
  Transmission Date: 20181010
  Serious: Yes (Life-Threatening, Hospitalization, Other)
  Sender: FDA-Public Use
  Company Number: US-ABBVIE-18K-163-2465471-00

PATIENT
  Age: 20 Year
  Sex: Female
  Weight: 91.71 kg

DRUGS (2)
  1. MAVYRET [Suspect]
     Active Substance: GLECAPREVIR\PIBRENTASVIR
     Indication: CHRONIC HEPATITIS C
  2. MAVYRET [Suspect]
     Active Substance: GLECAPREVIR\PIBRENTASVIR
     Indication: CHRONIC HEPATITIS C
     Route: 048
     Dates: start: 20180719

REACTIONS (8)
  - Unresponsive to stimuli [Recovered/Resolved]
  - Pneumonia aspiration [Unknown]
  - Liver function test increased [Unknown]
  - Respiratory failure [Unknown]
  - Skin discolouration [Unknown]
  - Suicide attempt [Unknown]
  - Accidental overdose [Unknown]
  - Ascites [Unknown]

NARRATIVE: CASE EVENT DATE: 20180818
